FAERS Safety Report 5335650-1 (Version None)
Quarter: 2007Q2

REPORT INFORMATION
  Report Type: 
  Country: None (occurrence: None)
  Receive Date: 20070322
  Receipt Date: 20061211
  Transmission Date: 20071010
  Serious: No
  Sender: FDA-Public Use
  Company Number: 2006US002860

PATIENT
  Sex: Female

DRUGS (2)
  1. VESICARE [Suspect]
     Indication: HYPERTONIC BLADDER
     Dosage: SEE IMAGE
     Route: 048
     Dates: start: 20060101
  2. SANCTURA [Concomitant]

REACTIONS (1)
  - RASH [None]
